FAERS Safety Report 11510340 (Version 1)
Quarter: 2015Q3

REPORT INFORMATION
  Report Type: Spontaneous
  Country: US (occurrence: US)
  Receive Date: 20150915
  Receipt Date: 20150915
  Transmission Date: 20151125
  Serious: No
  Sender: FDA-Public Use
  Company Number: US-JNJFOC-20150323691

PATIENT
  Age: 65 Year

DRUGS (4)
  1. VISINE [Suspect]
     Active Substance: TETRAHYDROZOLINE HYDROCHLORIDE
     Indication: RHINORRHOEA
     Route: 047
  2. EYE MEDICATIONS [Concomitant]
     Indication: EYE IRRITATION
     Route: 065
  3. EYE MEDICATIONS [Concomitant]
     Indication: RHINORRHOEA
     Route: 065
  4. VISINE [Suspect]
     Active Substance: TETRAHYDROZOLINE HYDROCHLORIDE
     Indication: EYE IRRITATION
     Route: 047

REACTIONS (2)
  - Drug ineffective for unapproved indication [Unknown]
  - Product use issue [Unknown]
